FAERS Safety Report 4597109-9 (Version None)
Quarter: 2005Q1

REPORT INFORMATION
  Report Type: 
  Country: None (occurrence: None)
  Receive Date: 20050223
  Receipt Date: 20050208
  Transmission Date: 20050727
  Serious: Yes (Other)
  Sender: FDA-Public Use
  Company Number: 200410395BBE

PATIENT
  Age: 8 Year
  Sex: Male

DRUGS (1)
  1. KOGENATE [Suspect]

REACTIONS (1)
  - FACTOR VIII INHIBITION [None]
